FAERS Safety Report 10874690 (Version 3)
Quarter: 2015Q4

REPORT INFORMATION
  Report Type: Spontaneous
  Country: US (occurrence: US)
  Receive Date: 20150227
  Receipt Date: 20151030
  Transmission Date: 20160304
  Serious: Yes (Hospitalization)
  Sender: FDA-Public Use
  Company Number: US-BAYER-2015-028158

PATIENT
  Age: 49 Year
  Sex: Female
  Weight: 70 kg

DRUGS (1)
  1. MIRENA [Suspect]
     Active Substance: LEVONORGESTREL
     Indication: CONTRACEPTION
     Dosage: 20 MCG/24HR, CONT
     Route: 015
     Dates: start: 20100219, end: 20131231

REACTIONS (8)
  - Abdominal pain [None]
  - Injury [None]
  - Depression [None]
  - Anxiety [None]
  - Scar [None]
  - Uterine perforation [None]
  - Emotional distress [None]
  - Back pain [None]

NARRATIVE: CASE EVENT DATE: 2013
